FAERS Safety Report 5300472-4 (Version None)
Quarter: 2007Q2

REPORT INFORMATION
  Report Type: 
  Country: None (occurrence: None)
  Receive Date: 20070418
  Receipt Date: 20070403
  Transmission Date: 20071010
  Serious: Yes (Death)
  Sender: FDA-Public Use
  Company Number: RU-GENENTECH-239649

PATIENT
  Sex: Male
  Weight: 55 kg

DRUGS (1)
  1. AVASTIN [Suspect]
     Indication: COLORECTAL CANCER METASTATIC
     Dosage: 400 MG, Q3W
     Route: 042
     Dates: start: 20061226

REACTIONS (1)
  - DEATH [None]
